FAERS Safety Report 8601377-3 (Version None)
Quarter: 2012Q3

REPORT INFORMATION
  Report Type: 
  Country: None (occurrence: None)
  Receive Date: 20120817
  Receipt Date: 20120806
  Transmission Date: 20120928
  Serious: Yes (Other)
  Sender: FDA-Public Use
  Company Number: GB-BRISTOL-MYERS SQUIBB COMPANY-16841439

PATIENT
  Age: 60 Year
  Sex: Female

DRUGS (1)
  1. BARACLUDE [Suspect]
     Dosage: DOSE REDUCED-0.5MG

REACTIONS (1)
  - LACTIC ACIDOSIS [None]
